FAERS Safety Report 6048513-3 (Version None)
Quarter: 2009Q1

REPORT INFORMATION
  Report Type: 
  Country: None (occurrence: None)
  Receive Date: 20090123
  Receipt Date: 20090114
  Transmission Date: 20090719
  Serious: Yes (Other)
  Sender: FDA-Public Use
  Company Number: B0555506A

PATIENT
  Age: 47 Year
  Sex: Male

DRUGS (1)
  1. AUGMENTIN '125' [Suspect]
     Indication: LOWER RESPIRATORY TRACT INFECTION

REACTIONS (4)
  - ANGIOEDEMA [None]
  - DRUG HYPERSENSITIVITY [None]
  - PRURITUS [None]
  - URTICARIA [None]
